FAERS Safety Report 8557726-8 (Version None)
Quarter: 2012Q3

REPORT INFORMATION
  Report Type: 
  Country: None (occurrence: None)
  Receive Date: 20120801
  Receipt Date: 20120723
  Transmission Date: 20120928
  Serious: Yes (Hospitalization)
  Sender: FDA-Public Use
  Company Number: FR-ASTRAZENECA-2012SE52611

PATIENT
  Age: 28311 Day
  Sex: Male

DRUGS (8)
  1. LEVOFLOXACIN [Suspect]
     Indication: OSTEITIS
     Route: 048
     Dates: start: 20120404
  2. ASPIRIN [Concomitant]
     Route: 048
  3. PRAVASTATIN [Concomitant]
     Route: 048
  4. LEUCOVORIN CALCIUM [Concomitant]
     Route: 048
  5. BACTRIM DS [Suspect]
     Indication: OSTEITIS
     Route: 048
     Dates: start: 20120404, end: 20120416
  6. ALLOPURINOL [Suspect]
     Route: 048
     Dates: end: 20120416
  7. ZESTORETIC [Suspect]
     Dosage: 20/12.5 MG/D
     Route: 048
     Dates: end: 20120416
  8. REPAGLINIDE [Concomitant]
     Route: 048

REACTIONS (4)
  - OSTEOMYELITIS [None]
  - DYSURIA [None]
  - HYPONATRAEMIA [None]
  - RENAL FAILURE ACUTE [None]
